FAERS Safety Report 4603534-X (Version None)
Quarter: 2005Q1

REPORT INFORMATION
  Report Type: 
  Country: None (occurrence: None)
  Receive Date: 20050224
  Receipt Date: 20041019
  Transmission Date: 20050727
  Serious: Yes (Death)
  Sender: FDA-Public Use
  Company Number: 041025-0000455

PATIENT
  Age: 27 Year
  Sex: 0

DRUGS (1)
  1. METHAMPHETAMINE HCL [Suspect]
     Dosage: INH
     Route: 055
     Dates: end: 20030101

REACTIONS (1)
  - INTENTIONAL MISUSE [None]
